FAERS Safety Report 7604218-6 (Version None)
Quarter: 2011Q3

REPORT INFORMATION
  Report Type: 
  Country: None (occurrence: None)
  Receive Date: 20110712
  Receipt Date: 20110707
  Transmission Date: 20111222
  Serious: Yes (Hospitalization)
  Sender: FDA-Public Use
  Company Number: US-MERCK-1107USA01047

PATIENT
  Age: 80 Year
  Sex: Female

DRUGS (4)
  1. FOSAMAX PLUS D [Suspect]
     Dosage: 70MG/VITAMIN D AMOUNT UNKNOWN
     Route: 048
     Dates: end: 20110101
  2. COZAAR [Concomitant]
     Route: 048
  3. ASPIRIN [Concomitant]
     Route: 065
  4. VITAMINS (UNSPECIFIED) [Concomitant]
     Route: 065

REACTIONS (1)
  - BENIGN NEOPLASM OF THYROID GLAND [None]
